FAERS Safety Report 6617678-4 (Version None)
Quarter: 2010Q1

REPORT INFORMATION
  Report Type: 
  Country: None (occurrence: None)
  Receive Date: 20100308
  Receipt Date: 20100226
  Transmission Date: 20100710
  Serious: Yes (Death, Other)
  Sender: FDA-Public Use
  Company Number: US-ABBOTT-10P-163-0625998-00

PATIENT
  Sex: Female
  Weight: 113.5 kg

DRUGS (1)
  1. HUMIRA [Suspect]
     Indication: RHEUMATOID ARTHRITIS
     Route: 058
     Dates: start: 20090620

REACTIONS (5)
  - ANKLE FRACTURE [None]
  - CARDIAC ARREST [None]
  - DYSKINESIA [None]
  - MUSCULAR WEAKNESS [None]
  - PULMONARY EMBOLISM [None]
